FAERS Safety Report 7557300-6 (Version None)
Quarter: 2011Q2

REPORT INFORMATION
  Report Type: 
  Country: None (occurrence: None)
  Receive Date: 20110620
  Receipt Date: 20080915
  Transmission Date: 20111010
  Serious: Yes (Congenital Anomaly, Other)
  Sender: FDA-Public Use
  Company Number: PHHY2008CA17740

PATIENT
  Sex: Male

DRUGS (1)
  1. SANDOSTATIN LAR [Suspect]
     Indication: ACROMEGALY
     Dosage: 30 MG EVERY 4 WEEKS
     Route: 030
     Dates: start: 20040220

REACTIONS (6)
  - MYALGIA [None]
  - INJURY [None]
  - ACROMEGALY [None]
  - ARTHRALGIA [None]
  - BEDRIDDEN [None]
  - DISEASE PROGRESSION [None]
